FAERS Safety Report 19134050 (Version 1)
Quarter: 2021Q2

REPORT INFORMATION
  Report Type: Spontaneous
  Country: CA (occurrence: CA)
  Receive Date: 20210414
  Receipt Date: 20210414
  Transmission Date: 20210717
  Serious: Yes (Hospitalization)
  Sender: FDA-Public Use
  Company Number: CA-PFIZER INC-2021381673

PATIENT
  Age: 17 Year
  Sex: Female
  Weight: 76 kg

DRUGS (1)
  1. ALESSE 28 [Suspect]
     Active Substance: ETHINYL ESTRADIOL\LEVONORGESTREL
     Indication: CONTRACEPTION
     Dosage: 1 DF, 1X/DAY
     Route: 048

REACTIONS (7)
  - Dyspnoea at rest [Unknown]
  - Deep vein thrombosis [Unknown]
  - Musculoskeletal pain [Unknown]
  - Oedema peripheral [Unknown]
  - Pulmonary embolism [Unknown]
  - Pain in extremity [Unknown]
  - Presyncope [Unknown]
